FAERS Safety Report 12323486 (Version 2)
Quarter: 2016Q2

REPORT INFORMATION
  Report Type: Spontaneous
  Country: US (occurrence: US)
  Receive Date: 20160502
  Receipt Date: 20160617
  Transmission Date: 20160815
  Serious: Yes (Other)
  Sender: FDA-Public Use
  Company Number: US-JNJFOC-20160425922

PATIENT
  Sex: Male
  Weight: 58.97 kg

DRUGS (3)
  1. LITHIUM. [Suspect]
     Active Substance: LITHIUM
     Indication: BIPOLAR DISORDER
     Route: 065
     Dates: end: 201202
  2. INVEGA SUSTENNA [Suspect]
     Active Substance: PALIPERIDONE PALMITATE
     Indication: BIPOLAR DISORDER
     Route: 030
     Dates: start: 2011, end: 201202
  3. ABILIFY [Suspect]
     Active Substance: ARIPIPRAZOLE
     Indication: BIPOLAR DISORDER
     Route: 065
     Dates: end: 201202

REACTIONS (7)
  - Product use issue [Unknown]
  - Mania [Recovered/Resolved]
  - Suicidal ideation [Recovered/Resolved]
  - Refusal of treatment by patient [Unknown]
  - Self-medication [Unknown]
  - Vomiting [Unknown]
  - Off label use [Unknown]

NARRATIVE: CASE EVENT DATE: 2011
